FAERS Safety Report 7652515-0 (Version None)
Quarter: 2011Q3

REPORT INFORMATION
  Report Type: 
  Country: None (occurrence: None)
  Receive Date: 20110801
  Receipt Date: 20110801
  Transmission Date: 20111222
  Serious: No
  Sender: FDA-Public Use
  Company Number: None

PATIENT
  Sex: Female

DRUGS (2)
  1. CLONAZEPAM [Suspect]
     Indication: ANXIETY
     Dosage: 0.5MG 1/2 8AM 1 QHS ORAL
     Route: 048
     Dates: start: 20110725, end: 20110727
  2. CLONAZEPAM [Suspect]
     Indication: CONVULSION
     Dosage: 0.5MG 1/2 8AM 1 QHS ORAL
     Route: 048
     Dates: start: 20110725, end: 20110727

REACTIONS (3)
  - PRODUCT SUBSTITUTION ISSUE [None]
  - ANXIETY [None]
  - NAUSEA [None]
